FAERS Safety Report 9950027 (Version 1)
Quarter: 2014Q1

REPORT INFORMATION
  Report Type: Report from Study
  Country: US (occurrence: US)
  Receive Date: 20140304
  Receipt Date: 20140304
  Transmission Date: 20141002
  Serious: No
  Sender: FDA-Public Use
  Company Number: US-ABBVIE-13P-163-1069415-00

PATIENT
  Age: 31 Year
  Sex: Male
  Weight: 88.53 kg

DRUGS (8)
  1. HUMIRA [Suspect]
     Indication: PSORIATIC ARTHROPATHY
     Dates: end: 201209
  2. HUMIRA [Suspect]
     Indication: PSORIASIS
     Dates: start: 201209
  3. ALEVE [Concomitant]
     Indication: PSORIATIC ARTHROPATHY
  4. PENTOPRAZOLE [Concomitant]
     Indication: GASTROOESOPHAGEAL REFLUX DISEASE
  5. MULTIVITAMIN [Concomitant]
     Indication: VITAMIN SUPPLEMENTATION
  6. MOVE FREE TOTAL JOINT HEALTH [Concomitant]
     Indication: SUPPLEMENTATION THERAPY
  7. FLUTICASONE PROPIONATE [Concomitant]
     Indication: HYPERSENSITIVITY
  8. CLOBETASOL [Concomitant]
     Indication: PSORIASIS

REACTIONS (7)
  - Joint range of motion decreased [Not Recovered/Not Resolved]
  - Drug effect incomplete [Not Recovered/Not Resolved]
  - Injection site pain [Not Recovered/Not Resolved]
  - Psoriasis [Not Recovered/Not Resolved]
  - Unevaluable event [Not Recovered/Not Resolved]
  - Arthritis [Not Recovered/Not Resolved]
  - Device malfunction [Unknown]
